FAERS Safety Report 7449645-5 (Version None)
Quarter: 2011Q2

REPORT INFORMATION
  Report Type: 
  Country: None (occurrence: None)
  Receive Date: 20110502
  Receipt Date: 20110425
  Transmission Date: 20111010
  Serious: Yes (Life-Threatening, Hospitalization, Other)
  Sender: FDA-Public Use
  Company Number: US-ELI_LILLY_AND_COMPANY-US200906006012

PATIENT
  Sex: Male
  Weight: 99.773 kg

DRUGS (18)
  1. KLOR-CON [Concomitant]
     Dosage: 10 MEQ, DAILY (1/D)
  2. ALDACTONE [Concomitant]
     Dosage: 12.5 MG, DAILY (1/D)
  3. COREG [Concomitant]
     Dosage: 12.5 MG, 2/D
  4. PRILOSEC [Concomitant]
     Dosage: 20 MG, DAILY (1/D)
  5. XANAX [Concomitant]
     Dosage: 0.25 MG, AS NEEDED
     Dates: start: 20090201
  6. TYLENOL (CAPLET) [Concomitant]
     Dosage: 650 MG, AS NEEDED
     Route: 048
  7. COUMADIN [Concomitant]
     Dosage: 5 MG, DAILY (1/D)
  8. LASIX [Concomitant]
     Dosage: 20 MG, DAILY (1/D)
  9. ASPIRIN [Concomitant]
     Dosage: 81 MG, DAILY (1/D)
  10. LANOXIN [Concomitant]
     Dosage: 0.125 MG, DAILY (1/D)
  11. BYETTA [Suspect]
     Dosage: 10 UG, 2/D
     Dates: start: 20050101
  12. ATACAND [Concomitant]
     Dosage: 16 MG, DAILY (1/D)
  13. IMDUR [Concomitant]
     Dosage: 30 MG, DAILY (1/D)
  14. LANTUS [Concomitant]
     Dosage: 20 U, EACH EVENING
  15. FISH OIL [Concomitant]
     Dosage: 1000 MG, 3/D
  16. VYTORIN [Concomitant]
     Dosage: UNK, DAILY (1/D)
  17. AMITRIPTLINE HYDROCHLORIDE TAB [Concomitant]
     Dosage: 25 MG, DAILY (1/D)
  18. MACROBID [Concomitant]
     Dosage: UNK, AS NEEDED

REACTIONS (8)
  - PANCREATITIS [None]
  - CHOLELITHIASIS [None]
  - PANCREATITIS ACUTE [None]
  - MULTI-ORGAN FAILURE [None]
  - PANCREATITIS RELAPSING [None]
  - RENAL FAILURE [None]
  - RESPIRATORY FAILURE [None]
  - OFF LABEL USE [None]
